FAERS Safety Report 16223586 (Version 1)
Quarter: 2019Q2

REPORT INFORMATION
  Report Type: Spontaneous
  Country: US (occurrence: US)
  Receive Date: 20190420
  Receipt Date: 20190420
  Transmission Date: 20190711
  Serious: No
  Sender: FDA-Public Use
  Company Number: None

PATIENT
  Age: 59 Year
  Sex: Female
  Weight: 103.5 kg

DRUGS (1)
  1. AZELAIC ACID GEL 15% [Suspect]
     Active Substance: AZELAIC ACID
     Indication: ROSACEA
     Dosage: ?          QUANTITY:50 GRAMS;?
     Route: 061
     Dates: start: 20190201

REACTIONS (4)
  - Product substitution issue [None]
  - Burning sensation [None]
  - Drug ineffective [None]
  - Rash [None]

NARRATIVE: CASE EVENT DATE: 20190201
